FAERS Safety Report 24463981 (Version 1)
Quarter: 2024Q4

REPORT INFORMATION
  Report Type: Report from Study
  Country: US (occurrence: US)
  Receive Date: 20241018
  Receipt Date: 20241018
  Transmission Date: 20250114
  Serious: No
  Sender: ROCHE
  Company Number: US-ROCHE-3498813

PATIENT
  Age: 60 Year
  Sex: Female
  Weight: 76.7 kg

DRUGS (12)
  1. XOLAIR [Suspect]
     Active Substance: OMALIZUMAB
     Indication: Asthma
     Route: 058
  2. XOLAIR [Suspect]
     Active Substance: OMALIZUMAB
  3. PRAZOSIN [Concomitant]
     Active Substance: PRAZOSIN\PRAZOSIN HYDROCHLORIDE
     Dosage: 1 MG CAPSULE
  4. FLUTICASONE [Concomitant]
     Active Substance: FLUTICASONE
     Dosage: 50 MCG/ACT NASAL SPRAY
  5. ALBUTEROL\IPRATROPIUM [Concomitant]
     Active Substance: ALBUTEROL\IPRATROPIUM
     Dosage: 0.5-2.5 MG/3ML SOLUTION NEBULIZER SOLUTION
  6. MONTELUKAST [Concomitant]
     Active Substance: MONTELUKAST
     Dosage: 10 MG TABLET
  7. PANTOPRAZOLE [Concomitant]
     Active Substance: PANTOPRAZOLE
     Dosage: 40 MG TABLET
  8. DICLOFENAC [Concomitant]
     Active Substance: DICLOFENAC
     Dosage: 75 MG EC TABLET
  9. BUDESONIDE\FORMOTEROL [Concomitant]
     Active Substance: BUDESONIDE\FORMOTEROL
     Dosage: 160-4.5 MCG/ACT INHALER
  10. BUSPIRONE [Concomitant]
     Active Substance: BUSPIRONE HYDROCHLORIDE
     Dosage: 15 MG TABLET
  11. ARIPIPRAZOLE [Concomitant]
     Active Substance: ARIPIPRAZOLE
     Dosage: 5 MG TABLET
  12. ESCITALOPRAM [Concomitant]
     Active Substance: ESCITALOPRAM OXALATE
     Dosage: 20 MG TABLET

REACTIONS (7)
  - Asthma [Unknown]
  - White blood cell count decreased [Unknown]
  - Red blood cell count increased [Unknown]
  - Neutrophil count increased [Unknown]
  - Monocyte count decreased [Unknown]
  - Blood glucose increased [Unknown]
  - Lymphocyte count decreased [Unknown]
